FAERS Safety Report 11137586 (Version 1)
Quarter: 2015Q2

REPORT INFORMATION
  Report Type: Spontaneous
  Country: TH (occurrence: TH)
  Receive Date: 20150526
  Receipt Date: 20150526
  Transmission Date: 20150821
  Serious: Yes (Hospitalization, Other)
  Sender: FDA-Public Use
  Company Number: PHHY2015TH061161

PATIENT
  Age: 42 Year
  Sex: Female

DRUGS (5)
  1. METHYLPREDNISOLONE. [Suspect]
     Active Substance: METHYLPREDNISOLONE
     Indication: TRANSPLANT REJECTION
     Route: 065
  2. MYCOPHENOLATE MOFETIL. [Suspect]
     Active Substance: MYCOPHENOLATE MOFETIL
     Indication: TRANSPLANT REJECTION
     Route: 065
  3. TACROLIMUS. [Suspect]
     Active Substance: TACROLIMUS
     Indication: TRANSPLANT REJECTION
     Route: 065
  4. PREDNISOLONE. [Suspect]
     Active Substance: PREDNISOLONE
     Indication: TRANSPLANT REJECTION
     Route: 065
  5. COTRIMOXAZOLE [Concomitant]
     Active Substance: SULFAMETHOXAZOLE\TRIMETHOPRIM
     Indication: ANTIFUNGAL PROPHYLAXIS
     Route: 065

REACTIONS (13)
  - Hyperaesthesia [Recovered/Resolved]
  - Pleurisy [Recovered/Resolved]
  - Hypoaesthesia [Recovered/Resolved]
  - Extradural abscess [Recovered/Resolved]
  - Cough [Recovered/Resolved]
  - Radicular pain [Recovered/Resolved]
  - Lung abscess [Recovered/Resolved]
  - Hyporeflexia [Recovered/Resolved]
  - Pyrexia [Recovered/Resolved]
  - Neuritis cranial [Recovered/Resolved]
  - Osteomyelitis [Recovered/Resolved]
  - Fungal infection [Recovered/Resolved]
  - Pain in extremity [Recovered/Resolved]
